FAERS Safety Report 6343765-4 (Version None)
Quarter: 2009Q3

REPORT INFORMATION
  Report Type: 
  Country: None (occurrence: None)
  Receive Date: 20090908
  Receipt Date: 20090828
  Transmission Date: 20100115
  Serious: Yes (Death)
  Sender: FDA-Public Use
  Company Number: B0584901A

PATIENT
  Age: 67 Year
  Sex: Female
  Weight: 58 kg

DRUGS (8)
  1. TYVERB [Suspect]
     Indication: METASTASES TO CENTRAL NERVOUS SYSTEM
     Dosage: 1250MG PER DAY
     Route: 065
     Dates: start: 20090506
  2. XELODA [Suspect]
     Indication: METASTASES TO CENTRAL NERVOUS SYSTEM
     Dosage: 3000MG PER DAY
     Route: 065
     Dates: start: 20090506
  3. LIDOCAINE [Concomitant]
     Dosage: 2000MGM2 PER DAY
     Route: 065
  4. FEMARA [Concomitant]
     Indication: BREAST NEOPLASM
     Dosage: 1TAB PER DAY
     Route: 065
  5. THYREX [Concomitant]
     Route: 065
  6. FORTECORTIN [Concomitant]
     Dosage: 4MG PER DAY
     Route: 065
  7. PAMIDRONATE DISODIUM [Concomitant]
     Indication: METASTASES TO BONE
     Route: 065
  8. CAPECITABINE [Concomitant]
     Indication: METASTASES TO BONE
     Route: 065

REACTIONS (7)
  - CEREBRAL HAEMORRHAGE [None]
  - DIARRHOEA [None]
  - PULMONARY HAEMORRHAGE [None]
  - RASH [None]
  - SKIN REACTION [None]
  - STOMATITIS [None]
  - SUDDEN DEATH [None]
